FAERS Safety Report 16166119 (Version 1)
Quarter: 2019Q2

REPORT INFORMATION
  Report Type: Spontaneous
  Country: US (occurrence: US)
  Receive Date: 20190406
  Receipt Date: 20190406
  Transmission Date: 20190711
  Serious: No
  Sender: FDA-Public Use
  Company Number: US-BIOGEN-2019BI00690863

PATIENT
  Sex: Female

DRUGS (1)
  1. AVONEX [Suspect]
     Active Substance: INTERFERON BETA-1A
     Indication: MULTIPLE SCLEROSIS
     Route: 050

REACTIONS (13)
  - Transient ischaemic attack [Not Recovered/Not Resolved]
  - Drug ineffective [Recovered/Resolved]
  - Tremor [Not Recovered/Not Resolved]
  - Nausea [Not Recovered/Not Resolved]
  - Injection site bruising [Recovered/Resolved]
  - Injection site swelling [Recovered/Resolved]
  - Multiple sclerosis [Not Recovered/Not Resolved]
  - Weight loss poor [Not Recovered/Not Resolved]
  - Injection site pain [Recovered/Resolved]
  - Hepatic steatosis [Unknown]
  - Migraine [Not Recovered/Not Resolved]
  - Memory impairment [Not Recovered/Not Resolved]
  - Influenza like illness [Recovered/Resolved]
